FAERS Safety Report 18537739 (Version 2)
Quarter: 2025Q2

REPORT INFORMATION
  Report Type: Spontaneous
  Country: RO (occurrence: RO)
  Receive Date: 20201123
  Receipt Date: 20250609
  Transmission Date: 20250716
  Serious: Yes (Other)
  Sender: PFIZER
  Company Number: RO-PFIZER INC-2020457148

PATIENT
  Sex: Female

DRUGS (16)
  1. XELJANZ [Suspect]
     Active Substance: TOFACITINIB CITRATE
     Dosage: 5 MG, 2X/DAY
     Route: 048
     Dates: start: 20190301, end: 20200821
  2. XELJANZ [Suspect]
     Active Substance: TOFACITINIB CITRATE
     Route: 048
  3. FOLIC ACID [Suspect]
     Active Substance: FOLIC ACID
     Dates: start: 20070110, end: 20190701
  4. LEFLUNOMIDE [Suspect]
     Active Substance: LEFLUNOMIDE
  5. MABTHERA [Suspect]
     Active Substance: RITUXIMAB
     Dosage: 1000 MG, 1X/DAY
     Dates: start: 20130530, end: 20180305
  6. MABTHERA [Suspect]
     Active Substance: RITUXIMAB
  7. METHOTREXATE [Suspect]
     Active Substance: METHOTREXATE
     Dosage: 15 MG, WEEKLY
     Dates: start: 20051001, end: 20130218
  8. METHOTREXATE [Suspect]
     Active Substance: METHOTREXATE
     Dates: start: 20130801, end: 20171001
  9. METHOTREXATE [Suspect]
     Active Substance: METHOTREXATE
     Dates: start: 20171001, end: 20190128
  10. REMICADE [Suspect]
     Active Substance: INFLIXIMAB
     Dosage: 100 MG, QW (AT 0,2,6 WEEKS)
     Dates: start: 20120704, end: 20130115
  11. REMICADE [Suspect]
     Active Substance: INFLIXIMAB
  12. CORDARONE [Concomitant]
     Active Substance: AMIODARONE HYDROCHLORIDE
     Dates: start: 20190913
  13. ACENOCOUMAROL [Concomitant]
     Active Substance: ACENOCOUMAROL
     Dates: start: 20190913
  14. METHYLPREDNISOLONE [Concomitant]
     Active Substance: METHYLPREDNISOLONE
     Dates: start: 20160901
  15. ALFACALCIDOL [Concomitant]
     Active Substance: ALFACALCIDOL
     Dates: start: 20070101
  16. RISEDRONIC ACID [Concomitant]
     Active Substance: RISEDRONIC ACID
     Dates: start: 20070101

REACTIONS (6)
  - Rheumatoid factor increased [Unknown]
  - C-reactive protein increased [Unknown]
  - Intentional dose omission [Unknown]
  - Hypersensitivity [Unknown]
  - Headache [Unknown]
  - Nausea [Unknown]

NARRATIVE: CASE EVENT DATE: 20190912
